FAERS Safety Report 12693020 (Version 1)
Quarter: 2016Q3

REPORT INFORMATION
  Report Type: Spontaneous
  Country: US (occurrence: US)
  Receive Date: 20160829
  Receipt Date: 20160829
  Transmission Date: 20161109
  Serious: Yes (Hospitalization, Other)
  Sender: FDA-Public Use
  Company Number: US-CIPLA LTD.-2014US00582

PATIENT

DRUGS (5)
  1. LAMIVUDINE. [Suspect]
     Active Substance: LAMIVUDINE
     Indication: ANTIRETROVIRAL THERAPY
     Dosage: UNK
     Route: 065
     Dates: start: 1996, end: 2006
  2. NELFINAVIR [Suspect]
     Active Substance: NELFINAVIR
     Indication: ANTIRETROVIRAL THERAPY
     Dosage: UNK
     Route: 065
     Dates: start: 1996, end: 2006
  3. DOXYCYCLINE. [Concomitant]
     Active Substance: DOXYCYCLINE
     Indication: ANTIBIOTIC THERAPY
     Dosage: UNK
     Route: 065
  4. TENOFOVIR/EMTRICITABINE/EFAVIRENZ [Suspect]
     Active Substance: EFAVIRENZ\EMTRICITABINE\TENOFOVIR DISOPROXIL FUMARATE
     Indication: ANTIRETROVIRAL THERAPY
     Dosage: UNK
     Route: 065
  5. ZIDOVUDINE. [Suspect]
     Active Substance: ZIDOVUDINE
     Indication: ANTIRETROVIRAL THERAPY
     Dosage: UNK
     Route: 065
     Dates: start: 1996, end: 2006

REACTIONS (13)
  - Multiple organ dysfunction syndrome [Unknown]
  - Nausea [Unknown]
  - Staphylococcal bacteraemia [Unknown]
  - Hypotension [Unknown]
  - Respiratory failure [Unknown]
  - Diarrhoea [Unknown]
  - Subcutaneous abscess [Unknown]
  - Asthenia [Unknown]
  - Vomiting [Unknown]
  - Treatment noncompliance [Unknown]
  - Fanconi syndrome acquired [Recovered/Resolved]
  - Depression [Unknown]
  - Acute kidney injury [Recovered/Resolved]
